FAERS Safety Report 12010383 (Version 3)
Quarter: 2016Q1

REPORT INFORMATION
  Report Type: Spontaneous
  Country: CH (occurrence: DE)
  Receive Date: 20160205
  Receipt Date: 20160229
  Transmission Date: 20160526
  Serious: Yes (Hospitalization)
  Sender: FDA-Public Use
  Company Number: CH-LPDUSPRD-20160089

PATIENT
  Age: 52 Year
  Sex: Male
  Weight: 81 kg

DRUGS (3)
  1. ENTYVIO [Concomitant]
     Active Substance: VEDOLIZUMAB
     Dosage: 300 MG (300 MG, 1 IN 4 WEEKS)
     Route: 042
     Dates: start: 20151027
  2. ELIQUIS [Concomitant]
     Active Substance: APIXABAN
     Dosage: 5-0-5
     Route: 048
     Dates: start: 20151110, end: 20160104
  3. FERINJECT [Suspect]
     Active Substance: FERRIC CARBOXYMALTOSE
     Dosage: 1000MG/250ML NACL OVER 15 MIN
     Dates: start: 20151209, end: 20151209

REACTIONS (1)
  - Cholangitis sclerosing [Recovered/Resolved]

NARRATIVE: CASE EVENT DATE: 20160106
